FAERS Safety Report 5627719-9 (Version None)
Quarter: 2008Q1

REPORT INFORMATION
  Report Type: 
  Country: None (occurrence: None)
  Receive Date: 20080215
  Receipt Date: 20080211
  Transmission Date: 20080703
  Serious: Yes (Hospitalization)
  Sender: FDA-Public Use
  Company Number: NZ-ASTRAZENECA-2008AP00931

PATIENT
  Age: 23003 Day
  Sex: Male

DRUGS (4)
  1. OMEPRAZOLE [Suspect]
     Indication: ABDOMINAL PAIN UPPER
     Route: 048
     Dates: start: 20061012, end: 20070115
  2. METOPROLOL TARTRATE [Concomitant]
     Route: 048
     Dates: start: 20061012
  3. DILTIAZEM [Concomitant]
     Indication: ESSENTIAL HYPERTENSION
     Route: 048
     Dates: start: 20061214
  4. CILAZAPRIL + HYDROCHOROTHIAZIDE [Concomitant]
     Indication: ESSENTIAL HYPERTENSION
     Route: 048
     Dates: start: 20010411

REACTIONS (1)
  - RENAL FAILURE ACUTE [None]
